FAERS Safety Report 7530933-9 (Version None)
Quarter: 2011Q2

REPORT INFORMATION
  Report Type: 
  Country: None (occurrence: None)
  Receive Date: 20110608
  Receipt Date: 20110527
  Transmission Date: 20111010
  Serious: Yes (Other)
  Sender: FDA-Public Use
  Company Number: US-ELI_LILLY_AND_COMPANY-US201106000299

PATIENT
  Age: 80 Year
  Sex: Female

DRUGS (3)
  1. CYMBALTA [Suspect]
     Indication: DEPRESSION
     Dosage: 60 MG, UNKNOWN
  2. CYMBALTA [Suspect]
     Dosage: 30 MG, UNKNOWN
  3. LEXAPRO [Concomitant]

REACTIONS (3)
  - HEPATIC CIRRHOSIS [None]
  - AUTOIMMUNE DISORDER [None]
  - EOSINOPHILIA [None]
